FAERS Safety Report 8830268 (Version 2)
Quarter: 2012Q4

REPORT INFORMATION
  Report Type: 
  Country: JP (occurrence: JP)
  Receive Date: 20121009
  Receipt Date: 20121019
  Transmission Date: 20130627
  Serious: Yes (Other)
  Sender: FDA-Public Use
  Company Number: JP-PFIZER INC-2012249498

PATIENT
  Age: 55 Year
  Sex: Male

DRUGS (12)
  1. LYRICA [Suspect]
     Indication: NEURALGIA
     Dosage: 25 mg, 1x/day
     Route: 048
     Dates: start: 20101229, end: 20101231
  2. LYRICA [Suspect]
     Dosage: 75 mg, 2x/day
     Route: 048
     Dates: start: 201108
  3. AMLODIPINE [Concomitant]
     Dosage: UNK
  4. BAYASPIRIN [Concomitant]
     Dosage: UNK
  5. DIOVAN (VALSARTAN) [Concomitant]
     Dosage: UNK
  6. ARTIST [Concomitant]
     Dosage: UNK
  7. WARFARIN [Concomitant]
     Dosage: UNK
  8. OMEPRAZOLE [Concomitant]
     Dosage: UNK
  9. CERCIN [Concomitant]
     Dosage: UNK
  10. RYTHMODAN [Concomitant]
     Dosage: UNK
  11. GOODMIN [Concomitant]
     Dosage: UNK
  12. VASOLAN [Concomitant]
     Dosage: UNK

REACTIONS (2)
  - Arrhythmia [Recovered/Resolved]
  - Palpitations [Not Recovered/Not Resolved]
